FAERS Safety Report 12412027 (Version 3)
Quarter: 2016Q2

REPORT INFORMATION
  Report Type: Spontaneous
  Country: DK (occurrence: IT)
  Receive Date: 20160527
  Receipt Date: 20160616
  Transmission Date: 20160815
  Serious: Yes (Other)
  Sender: FDA-Public Use
  Company Number: IT-FRI-1000084947

PATIENT
  Age: 45 Year
  Sex: Female

DRUGS (3)
  1. CITALOPRAM [Suspect]
     Active Substance: CITALOPRAM HYDROBROMIDE
     Dosage: OVERDOSE: 6 TABLETS AT ONCE, 120 MG
     Route: 048
     Dates: start: 20160509, end: 20160509
  2. XANAX 0,25MG COMPRESSE / ALPRAZOLAM [Concomitant]
     Indication: DEPRESSION
     Dosage: 0.25MG MAXIMUM 2 TIMES A DAY
     Route: 048
  3. CITALOPRAM [Suspect]
     Active Substance: CITALOPRAM HYDROBROMIDE
     Indication: DEPRESSION
     Dosage: 20 MG
     Route: 048

REACTIONS (1)
  - Drug abuse [Recovering/Resolving]

NARRATIVE: CASE EVENT DATE: 20160509
